FAERS Safety Report 8995255 (Version 1)
Quarter: 2012Q4

REPORT INFORMATION
  Report Type: Spontaneous
  Country: US (occurrence: None)
  Receive Date: 20121221
  Receipt Date: 20121221
  Transmission Date: 20130627
  Serious: Yes (Other)
  Sender: FDA-Public Use
  Company Number: 2012P1067050

PATIENT
  Sex: Female

DRUGS (4)
  1. FENTANYL [Suspect]
     Indication: EPIDURAL ANALGESIA
     Route: 064
  2. BUPIVACAINE [Suspect]
     Indication: EPIDURAL ANALGESIA
     Route: 064
  3. LIDOCAINE [Suspect]
     Indication: EPIDURAL ANALGESIA
     Route: 064
  4. EPINEPHRINE [Concomitant]

REACTIONS (4)
  - Maternal drugs affecting foetus [None]
  - Bradycardia foetal [None]
  - Premature separation of placenta [None]
  - Caesarean section [None]
